FAERS Safety Report 17570122 (Version 2)
Quarter: 2020Q1

REPORT INFORMATION
  Report Type: Report from Study
  Country: US (occurrence: US)
  Receive Date: 20200323
  Receipt Date: 20200325
  Transmission Date: 20200409
  Serious: Yes (Death)
  Sender: FDA-Public Use
  Company Number: US-ASTRAZENECA-2020SE40345

PATIENT
  Age: 67 Year
  Sex: Female

DRUGS (2)
  1. TAGRISSO [Suspect]
     Active Substance: OSIMERTINIB
     Indication: LUNG CARCINOMA CELL TYPE UNSPECIFIED STAGE 0
     Route: 048
     Dates: start: 201803
  2. TAGRISSO [Suspect]
     Active Substance: OSIMERTINIB
     Indication: CENTRAL NERVOUS SYSTEM NEOPLASM
     Route: 048
     Dates: start: 201803

REACTIONS (1)
  - Death [Fatal]

NARRATIVE: CASE EVENT DATE: 20200313
